FAERS Safety Report 16284029 (Version 1)
Quarter: 2019Q2

REPORT INFORMATION
  Report Type: Spontaneous
  Country: FR (occurrence: FR)
  Receive Date: 20190507
  Receipt Date: 20190507
  Transmission Date: 20190711
  Serious: Yes (Other)
  Sender: FDA-Public Use
  Company Number: FR-IDTAUSTRALIA-2019-FR-000082

PATIENT
  Age: 27 Year
  Sex: Female

DRUGS (2)
  1. NIVOLUMAB [Suspect]
     Active Substance: NIVOLUMAB
     Indication: GLIOBLASTOMA
     Dosage: 3 MG/KG EVERY 15 DAYS
     Route: 042
  2. TEMOZOLOMIDE CAPSULES (NON-SPECIFIC) [Suspect]
     Active Substance: TEMOZOLOMIDE
     Indication: GLIOBLASTOMA

REACTIONS (3)
  - Central nervous system inflammation [Unknown]
  - Neutropenia [Unknown]
  - Thrombocytopenia [Unknown]
